FAERS Safety Report 11498440 (Version 1)
Quarter: 2015Q3

REPORT INFORMATION
  Report Type: Spontaneous
  Country: US (occurrence: US)
  Receive Date: 20150911
  Receipt Date: 20150911
  Transmission Date: 20151125
  Serious: Yes (Other)
  Sender: FDA-Public Use
  Company Number: US-TAKEDA-TPA2011A08271

PATIENT

DRUGS (8)
  1. GLYSET                             /01364001/ [Concomitant]
     Dosage: 25 MG, UNK
     Dates: start: 20010222
  2. GLUCOTROL [Concomitant]
     Active Substance: GLIPIZIDE
     Dosage: 5 MG, UNK
     Dates: start: 20001015
  3. JANUVIA [Concomitant]
     Active Substance: SITAGLIPTIN PHOSPHATE
     Dosage: 100 MG, UNK
     Dates: start: 2010, end: 2011
  4. AVANDIA [Concomitant]
     Active Substance: ROSIGLITAZONE MALEATE
     Dosage: 4 MG, UNK
     Dates: start: 2000, end: 2006
  5. GLUCOTROL [Concomitant]
     Active Substance: GLIPIZIDE
     Dosage: 4 MG, UNK
     Dates: start: 2007, end: 2008
  6. ACTOS [Suspect]
     Active Substance: PIOGLITAZONE HYDROCHLORIDE
     Indication: TYPE 2 DIABETES MELLITUS
     Dosage: 45 MG, UNK
     Route: 048
     Dates: start: 20070806
  7. METFORMIN [Concomitant]
     Active Substance: METFORMIN HYDROCHLORIDE
     Dosage: 500 MG, UNK
     Dates: start: 2001, end: 2010
  8. GLUCOPHAGE [Concomitant]
     Active Substance: METFORMIN HYDROCHLORIDE
     Dosage: 850 MG, UNK
     Dates: start: 2000, end: 2001

REACTIONS (10)
  - Gastrointestinal disorder [Unknown]
  - Decreased appetite [Unknown]
  - Bladder cancer recurrent [Unknown]
  - Weight decreased [Unknown]
  - Micturition urgency [Unknown]
  - Blood urine present [Unknown]
  - Abdominal pain lower [Unknown]
  - Pollakiuria [Unknown]
  - Dysuria [Unknown]
  - Back pain [Unknown]

NARRATIVE: CASE EVENT DATE: 20080530
